FAERS Safety Report 4958914-X (Version None)
Quarter: 2006Q1

REPORT INFORMATION
  Report Type: 
  Country: None (occurrence: None)
  Receive Date: 20060324
  Receipt Date: 20060320
  Transmission Date: 20060701
  Serious: Yes (Life-Threatening, Hospitalization)
  Sender: FDA-Public Use
  Company Number: WAES 0603SGP00002

PATIENT
  Age: 68 Year
  Sex: Male

DRUGS (10)
  1. VYTORIN [Suspect]
     Indication: HYPERLIPIDAEMIA
     Dosage: PO
     Route: 048
     Dates: start: 20060215, end: 20060301
  2. ASPIRIN [Concomitant]
  3. BISOPROLOL [Concomitant]
  4. CLOPIDOGREL BISULFATE [Concomitant]
  5. ENALAPRIL MALEATE [Concomitant]
  6. FUROSEMIDE [Concomitant]
  7. ISOSORBIDE MONONITRATE [Concomitant]
  8. OMEPRAZOLE [Concomitant]
  9. POTASSIUM CHLORIDE [Concomitant]
  10. TRIMETAZIDINE [Concomitant]

REACTIONS (2)
  - ACUTE CORONARY SYNDROME [None]
  - URTICARIA [None]
